FAERS Safety Report 12178064 (Version 1)
Quarter: 2016Q1

REPORT INFORMATION
  Report Type: Spontaneous
  Country: US (occurrence: None)
  Receive Date: 20160314
  Receipt Date: 20160314
  Transmission Date: 20160526
  Serious: Yes (Hospitalization)
  Sender: FDA-Public Use
  Company Number: None

PATIENT
  Age: 15 Year
  Sex: Male
  Weight: 61.7 kg

DRUGS (4)
  1. MITOXANTRONE HYDROCHLORIDE. [Suspect]
     Active Substance: MITOXANTRONE HYDROCHLORIDE
     Dates: end: 20160221
  2. DAUNORUBICIN [Suspect]
     Active Substance: DAUNORUBICIN
     Dates: end: 20151221
  3. ETOPOSIDE (VP-16) [Suspect]
     Active Substance: ETOPOSIDE
     Dates: end: 20160124
  4. CYTARABINE. [Suspect]
     Active Substance: CYTARABINE
     Dates: end: 20160220

REACTIONS (9)
  - Adrenal insufficiency [None]
  - Hypotension [None]
  - Sepsis [None]
  - Fatigue [None]
  - Pancytopenia [None]
  - Dehydration [None]
  - Transfusion reaction [None]
  - Lymphadenitis [None]
  - Hypothermia [None]

NARRATIVE: CASE EVENT DATE: 20150224
